FAERS Safety Report 8346457-5 (Version None)
Quarter: 2012Q2

REPORT INFORMATION
  Report Type: 
  Country: None (occurrence: None)
  Receive Date: 20120509
  Receipt Date: 20120504
  Transmission Date: 20120825
  Serious: Yes (Other)
  Sender: FDA-Public Use
  Company Number: FR-PFIZER INC-2012109603

PATIENT
  Age: 58 Year
  Sex: Female

DRUGS (1)
  1. GEMFIBROZIL [Suspect]
     Indication: BLOOD CHOLESTEROL
     Dosage: UNK, DAILY DOSE

REACTIONS (2)
  - FATIGUE [None]
  - RED BLOOD CELL COUNT DECREASED [None]
